FAERS Safety Report 9450426 (Version 2)
Quarter: 2013Q3

REPORT INFORMATION
  Report Type: Spontaneous
  Country: US (occurrence: US)
  Receive Date: 20130809
  Receipt Date: 20130919
  Transmission Date: 20140515
  Serious: Yes (Other)
  Sender: FDA-Public Use
  Company Number: US-AMGEN-USASP2013054361

PATIENT
  Age: 50 Year
  Sex: Female
  Weight: 77.55 kg

DRUGS (3)
  1. ENBREL [Suspect]
     Indication: PSORIASIS
     Dosage: 50 MG, 2 TIMES/WK
     Route: 058
     Dates: start: 201205, end: 20130328
  2. HUMIRA [Suspect]
     Indication: PSORIASIS
     Dosage: 40 MG, Q2WK
     Route: 058
     Dates: start: 20130404, end: 20130430
  3. METHOTREXATE [Concomitant]
     Dosage: UNK

REACTIONS (3)
  - Encephalopathy [Unknown]
  - Muscular weakness [Recovered/Resolved]
  - Demyelination [Recovering/Resolving]
